FAERS Safety Report 15172477 (Version 4)
Quarter: 2018Q3

REPORT INFORMATION
  Report Type: Report from Study
  Country: BR (occurrence: BR)
  Receive Date: 20180720
  Receipt Date: 20180917
  Transmission Date: 20181010
  Serious: Yes (Hospitalization, Other)
  Sender: FDA-Public Use
  Company Number: PHHY2016BR052553

PATIENT
  Age: 15 Year
  Sex: Male
  Weight: 55 kg

DRUGS (13)
  1. EXJADE [Suspect]
     Active Substance: DEFERASIROX
     Indication: SICKLE CELL ANAEMIA
     Dosage: 2 DF OF 500 MG (10 MG/KG), QD
     Route: 048
     Dates: start: 200511
  2. EXJADE [Suspect]
     Active Substance: DEFERASIROX
     Dosage: 2000 MG, QD
     Route: 048
     Dates: start: 20180701
  3. EXJADE [Suspect]
     Active Substance: DEFERASIROX
     Dosage: 4 DF (2000 MG), QD
     Route: 048
  4. ASA [Concomitant]
     Active Substance: ASPIRIN
     Indication: PHLEBOTOMY
     Dosage: 1 DF, QD SINCE 14 YEARS AGO
     Route: 048
  5. EXJADE [Suspect]
     Active Substance: DEFERASIROX
     Dosage: 1000 MG, QD (2 TABLETS OF 500 MG)
     Route: 048
  6. HIDROXIUREA [Concomitant]
     Active Substance: HYDROXYUREA
     Indication: PAIN
  7. HIDROXIUREA [Concomitant]
     Active Substance: HYDROXYUREA
     Indication: SICKLE CELL ANAEMIA
  8. HYDREA [Concomitant]
     Active Substance: HYDROXYUREA
     Indication: PAIN
     Dosage: 2 DF, QD SINCE 5 YEARS OF AGE
     Route: 048
  9. HIDROXIUREA [Concomitant]
     Active Substance: HYDROXYUREA
     Indication: ARTHRALGIA
  10. EXJADE [Suspect]
     Active Substance: DEFERASIROX
     Dosage: 20 MG/KG, QD (2 DF OF 500 MG (1000 MG))
     Route: 048
     Dates: start: 201511, end: 20160313
  11. FOLIC ACID. [Concomitant]
     Active Substance: FOLIC ACID
     Indication: SICKLE CELL ANAEMIA
     Dosage: 1 DF, QD SINCE 6 MONTHS OF AGE
     Route: 048
  12. ASA [Concomitant]
     Active Substance: ASPIRIN
     Indication: SICKLE CELL ANAEMIA
     Dosage: 1 DF, QD
     Route: 048
     Dates: start: 2014
  13. HIDROXIUREA [Concomitant]
     Active Substance: HYDROXYUREA
     Indication: CEREBROVASCULAR DISORDER
     Dosage: 2 DF, QD
     Route: 048

REACTIONS (21)
  - Arthralgia [Recovering/Resolving]
  - Nasal disorder [Recovering/Resolving]
  - Pulmonary infarction [Unknown]
  - Sickle cell anaemia with crisis [Recovering/Resolving]
  - Weight decreased [Recovered/Resolved]
  - Blood iron increased [Unknown]
  - Serum ferritin increased [Unknown]
  - Balance disorder [Recovering/Resolving]
  - Pain in extremity [Recovering/Resolving]
  - Keratoconus [Not Recovered/Not Resolved]
  - Mumps [Recovered/Resolved]
  - Oropharyngeal pain [Not Recovered/Not Resolved]
  - Pyrexia [Recovered/Resolved]
  - Tonsillar hypertrophy [Not Recovered/Not Resolved]
  - Hypophagia [Recovered/Resolved]
  - Pharyngeal inflammation [Recovering/Resolving]
  - Eczema [Not Recovered/Not Resolved]
  - Pyrexia [Not Recovered/Not Resolved]
  - Urinary tract infection [Recovering/Resolving]
  - Malaise [Recovering/Resolving]
  - Drug ineffective [Unknown]

NARRATIVE: CASE EVENT DATE: 20160313
